FAERS Safety Report 10706908 (Version 2)
Quarter: 2015Q1

REPORT INFORMATION
  Report Type: Spontaneous
  Country: JP (occurrence: JP)
  Receive Date: 20150113
  Receipt Date: 20150113
  Transmission Date: 20150721
  Serious: Yes (Death)
  Sender: FDA-Public Use
  Company Number: JP-NOVOPROD-434666

PATIENT
  Age: 46 Year
  Sex: Female
  Weight: 76 kg

DRUGS (7)
  1. CEFMETAZOLE SODIUM [Concomitant]
     Active Substance: CEFMETAZOLE SODIUM
     Indication: BLOOD PRESSURE DECREASED
     Dosage: UNK
     Route: 065
     Dates: start: 20150103, end: 20150103
  2. NOVOSEVEN [Suspect]
     Active Substance: COAGULATION FACTOR VIIA RECOMBINANT HUMAN
     Indication: OFF LABEL USE
  3. UROKINASE [Concomitant]
     Active Substance: UROKINASE
     Indication: PULMONARY EMBOLISM
     Dosage: 240,000 UNIT
     Route: 065
     Dates: start: 20150103, end: 20150103
  4. NOVOSEVEN [Suspect]
     Active Substance: COAGULATION FACTOR VIIA RECOMBINANT HUMAN
     Indication: HAEMOSTASIS
     Dosage: 10 MG, QD
     Route: 042
     Dates: start: 20150103, end: 20150103
  5. ADRENALINE                         /00003901/ [Concomitant]
     Active Substance: EPINEPHRINE
     Indication: BLOOD PRESSURE DECREASED
     Dosage: UNK
     Route: 065
     Dates: start: 20150103, end: 20150103
  6. NOREPINEPHRINE [Concomitant]
     Active Substance: NOREPINEPHRINE\NOREPINEPHRINE BITARTRATE
     Indication: BLOOD PRESSURE DECREASED
     Dosage: UNK
     Route: 065
     Dates: start: 20150103, end: 20150103
  7. HEPARIN [Concomitant]
     Active Substance: HEPARIN SODIUM
     Indication: PULMONARY EMBOLISM
     Dosage: 2500.00 U, QD
     Route: 065
     Dates: start: 20150103, end: 20150103

REACTIONS (2)
  - Product use issue [Unknown]
  - General physical health deterioration [Fatal]
